FAERS Safety Report 5673692-7 (Version None)
Quarter: 2008Q1

REPORT INFORMATION
  Report Type: 
  Country: None (occurrence: None)
  Receive Date: 20080319
  Receipt Date: 20080307
  Transmission Date: 20080703
  Serious: Yes (Other)
  Sender: FDA-Public Use
  Company Number: US-PFIZER INC-2008011419

PATIENT
  Sex: Male
  Weight: 78.5 kg

DRUGS (6)
  1. CAVERJECT [Suspect]
     Indication: ERECTILE DYSFUNCTION
  2. VIAGRA [Suspect]
     Indication: ERECTILE DYSFUNCTION
     Route: 048
     Dates: start: 20060101, end: 20060101
  3. LEVITRA [Concomitant]
  4. CIALIS [Concomitant]
  5. ATENOLOL [Concomitant]
  6. FLUTICASONE PROPIONATE [Concomitant]

REACTIONS (4)
  - DRUG INEFFECTIVE [None]
  - ERECTION INCREASED [None]
  - EYE DISORDER [None]
  - PAINFUL ERECTION [None]
